FAERS Safety Report 6494852-1 (Version None)
Quarter: 2009Q4

REPORT INFORMATION
  Report Type: 
  Country: None (occurrence: None)
  Receive Date: 20091214
  Receipt Date: 20091207
  Transmission Date: 20100525
  Serious: Yes (Hospitalization)
  Sender: FDA-Public Use
  Company Number: PHHO2009PL13871

PATIENT
  Sex: Male
  Weight: 23 kg

DRUGS (1)
  1. ELIDEL [Suspect]
     Indication: DERMATITIS ATOPIC
     Dosage: TWICE DAILY
     Route: 061
     Dates: start: 20041104

REACTIONS (3)
  - CHRONIC TONSILLITIS [None]
  - CONCOMITANT DISEASE PROGRESSION [None]
  - TONSILLECTOMY [None]
